FAERS Safety Report 5842600-8 (Version None)
Quarter: 2008Q3

REPORT INFORMATION
  Report Type: 
  Country: None (occurrence: None)
  Receive Date: 20080808
  Receipt Date: 20080728
  Transmission Date: 20090109
  Serious: Yes (Other)
  Sender: FDA-Public Use
  Company Number: 031803

PATIENT
  Age: 49 Year
  Sex: Male

DRUGS (4)
  1. METHOTREXATE(EMTHOTREXATE) [Suspect]
     Indication: PEMPHIGUS
     Dosage: 7.5 MG/WEEK IN 3 DIVIDED DOSES, ORAL; 60 MG/DAY, ORAL
     Route: 048
  2. PREDNISONE [Suspect]
     Indication: PEMPHIGUS
     Dosage: 60 MG/DAY, ORAL; 7.5MG/DAY, MORE THAN 1 YEAR, ORAL; 20 MG/DAY, ORAL; 15 MG/DAY, ORAL
     Route: 048
  3. SODIUM AURO THIOMALATE (SODIUM AUROTHIOMALATE) [Concomitant]
  4. DAPSONE [Concomitant]

REACTIONS (1)
  - KAPOSI'S SARCOMA [None]
